FAERS Safety Report 14045229 (Version 1)
Quarter: 2017Q4

REPORT INFORMATION
  Report Type: Report from Study
  Country: None (occurrence: US)
  Receive Date: 20171005
  Receipt Date: 20171005
  Transmission Date: 20180321
  Serious: Yes (Hospitalization, Other)
  Sender: FDA-Public Use
  Company Number: US-ABBVIE-17K-163-2026222-00

PATIENT
  Sex: Female
  Weight: 67.65 kg

DRUGS (3)
  1. HUMIRA [Suspect]
     Active Substance: ADALIMUMAB
     Dosage: DAY 8 (TWO PENS)
     Route: 058
     Dates: start: 201608, end: 201608
  2. HUMIRA [Suspect]
     Active Substance: ADALIMUMAB
     Indication: CROHN^S DISEASE
     Dosage: DAY ONE (FOUR PENS)
     Route: 058
     Dates: start: 201608, end: 201608
  3. HUMIRA [Suspect]
     Active Substance: ADALIMUMAB
     Route: 058
     Dates: start: 201609

REACTIONS (6)
  - Stoma site abscess [Recovering/Resolving]
  - Injection site pain [Not Recovered/Not Resolved]
  - Fistula of small intestine [Recovering/Resolving]
  - Drug effect incomplete [Not Recovered/Not Resolved]
  - Stoma site infection [Unknown]
  - Perineal abscess [Recovering/Resolving]

NARRATIVE: CASE EVENT DATE: 2017
